FAERS Safety Report 8822639 (Version 1)
Quarter: 2012Q4

REPORT INFORMATION
  Report Type: 
  Country: DE (occurrence: DE)
  Receive Date: 20121003
  Receipt Date: 20121003
  Transmission Date: 20130627
  Serious: Yes (Hospitalization)
  Sender: FDA-Public Use
  Company Number: DE-PFIZER INC-2012239101

PATIENT
  Age: 65 Year
  Sex: Male
  Weight: 109 kg

DRUGS (7)
  1. GENOTROPIN [Suspect]
     Dosage: 0.5 mg, 1x/day, 7inj/wk
     Route: 058
     Dates: start: 20090114, end: 20091201
  2. LEVOTHYROXINE [Concomitant]
     Indication: HYPOTHYROIDISM
     Dosage: UNK
     Dates: start: 19981015
  3. TESTOSTERON [Concomitant]
     Indication: BLOOD LUTEINISING HORMONE DECREASED
     Dosage: UNK
     Dates: start: 19990115
  4. TESTOSTERON [Concomitant]
     Indication: BLOOD FOLLICLE STIMULATING HORMONE DECREASED
  5. TESTOSTERON [Concomitant]
     Indication: HYPOGONADISM MALE
  6. HYDROCORTISONE [Concomitant]
     Indication: BLOOD CORTICOTROPHIN DECREASED
     Dosage: UNK
     Dates: start: 19981015
  7. MINIRIN [Concomitant]
     Indication: BLOOD ANTIDIURETIC HORMONE DECREASED
     Dosage: UNK
     Dates: start: 2010

REACTIONS (2)
  - Hypernatraemia [Unknown]
  - Diabetes insipidus [Unknown]
